FAERS Safety Report 18296467 (Version 7)
Quarter: 2021Q4

REPORT INFORMATION
  Report Type: Spontaneous
  Country: US (occurrence: US)
  Receive Date: 20200922
  Receipt Date: 20211122
  Transmission Date: 20220303
  Serious: Yes (Other)
  Sender: FDA-Public Use
  Company Number: US-PFIZER INC-2020365147

PATIENT
  Age: 58 Year
  Sex: Female

DRUGS (2)
  1. LYRICA [Suspect]
     Active Substance: PREGABALIN
     Indication: Diabetic neuropathy
     Dosage: 200 MG, 2X/DAY
     Route: 048
  2. LYRICA [Suspect]
     Active Substance: PREGABALIN
     Indication: Type 2 diabetes mellitus

REACTIONS (5)
  - Deafness unilateral [Unknown]
  - Cerebrovascular accident [Unknown]
  - COVID-19 [Unknown]
  - Pain [Unknown]
  - Off label use [Unknown]
